FAERS Safety Report 5597936-5 (Version None)
Quarter: 2008Q1

REPORT INFORMATION
  Report Type: 
  Country: None (occurrence: None)
  Receive Date: 20080122
  Receipt Date: 20080111
  Transmission Date: 20080703
  Serious: Yes (Other)
  Sender: FDA-Public Use
  Company Number: US-BAYER-200811345NA

PATIENT
  Age: 54 Year
  Sex: Female
  Weight: 91 kg

DRUGS (2)
  1. ANGELIQ [Suspect]
     Indication: HORMONE REPLACEMENT THERAPY
     Dosage: TOTAL DAILY DOSE: 1 DF
     Route: 048
     Dates: start: 20071219
  2. WELLBUTRIN [Concomitant]
     Indication: DEPRESSION

REACTIONS (4)
  - ABDOMINAL PAIN UPPER [None]
  - DYSKINESIA [None]
  - HEADACHE [None]
  - SPEECH DISORDER [None]
